FAERS Safety Report 6832018-3 (Version None)
Quarter: 2010Q3

REPORT INFORMATION
  Report Type: 
  Country: None (occurrence: None)
  Receive Date: 20100712
  Receipt Date: 20100630
  Transmission Date: 20110219
  Serious: Yes (Life-Threatening)
  Sender: FDA-Public Use
  Company Number: DE-NOVOPROD-301385

PATIENT
  Sex: Female
  Weight: 94 kg

DRUGS (14)
  1. VICTOZA [Suspect]
     Dosage: 0.6 MG, QD
     Route: 058
     Dates: start: 20091109, end: 20091117
  2. VICTOZA [Suspect]
     Dosage: UNK
     Dates: start: 20091119, end: 20091119
  3. GLIMEPIRID [Suspect]
     Indication: TYPE 2 DIABETES MELLITUS
     Dosage: 1 MG, QD
     Route: 048
  4. JANUVIA [Concomitant]
     Dosage: UNK
     Route: 048
     Dates: end: 20091102
  5. SIMVASTATIN [Concomitant]
     Dosage: 20 MG, QD
     Route: 048
  6. DIOVAN HCT [Concomitant]
     Dosage: 1 DF, QD
     Route: 048
  7. DIGIMERCK [Concomitant]
     Dosage: UNK
     Route: 048
  8. METFOGAMMA [Concomitant]
     Dosage: UNK
     Route: 048
  9. CARMEN [Concomitant]
     Dosage: UNK
     Route: 048
  10. NEBIVOLOL HCL [Concomitant]
     Dosage: UNK
     Route: 048
  11. ALLOPURINOL [Concomitant]
     Dosage: UNK
     Route: 048
  12. TILIDIN [Concomitant]
     Dosage: UNK
     Route: 048
  13. TORSEMIDE [Concomitant]
     Dosage: UNK
     Route: 048
  14. COTRIM [Concomitant]
     Indication: URINARY TRACT INFECTION
     Dosage: UNK
     Dates: start: 20091116, end: 20091119

REACTIONS (5)
  - CIRCULATORY COLLAPSE [None]
  - DIARRHOEA [None]
  - NAUSEA [None]
  - PRURITUS [None]
  - URINARY TRACT INFECTION [None]
